FAERS Safety Report 20679326 (Version 1)
Quarter: 2022Q2

REPORT INFORMATION
  Report Type: Spontaneous
  Country: US (occurrence: None)
  Receive Date: 20220406
  Receipt Date: 20220406
  Transmission Date: 20220721
  Serious: Yes (Hospitalization)
  Sender: FDA-Public Use
  Company Number: 2022A133108

PATIENT
  Age: 21371 Day
  Sex: Female
  Weight: 63.5 kg

DRUGS (3)
  1. BUDESONIDE\FORMOTEROL\GLYCOPYRRONIUM [Suspect]
     Active Substance: BUDESONIDE\FORMOTEROL\GLYCOPYRRONIUM
     Indication: Emphysema
     Dosage: 160 MCG- 9MCG- 4.8 MCG 2 PUFFS TWICE A DAY
     Route: 055
     Dates: start: 20220316
  2. BUDESONIDE\FORMOTEROL\GLYCOPYRRONIUM [Suspect]
     Active Substance: BUDESONIDE\FORMOTEROL\GLYCOPYRRONIUM
     Indication: Emphysema
     Dosage: 160 MCG- 9MCG- 4.8 MCG 2 PUFFS TWICE A DAY
     Route: 055
     Dates: start: 20220316
  3. SYMBICORT [Suspect]
     Active Substance: BUDESONIDE\FORMOTEROL FUMARATE DIHYDRATE
     Indication: Chronic obstructive pulmonary disease
     Dosage: 160-4.5 MCG 2 PUFFS TWICE DAILY
     Route: 055
     Dates: end: 202111

REACTIONS (8)
  - Lower respiratory tract infection [Recovered/Resolved]
  - Chronic obstructive pulmonary disease [Recovered/Resolved]
  - Malaise [Unknown]
  - Candida infection [Not Recovered/Not Resolved]
  - Chest discomfort [Unknown]
  - Drug ineffective [Unknown]
  - Intentional device misuse [Unknown]
  - Device malfunction [Unknown]

NARRATIVE: CASE EVENT DATE: 20220326
